FAERS Safety Report 4566715-X (Version None)
Quarter: 2005Q1

REPORT INFORMATION
  Report Type: 
  Country: None (occurrence: None)
  Receive Date: 20050201
  Receipt Date: 20011002
  Transmission Date: 20050727
  Serious: Yes (Other)
  Sender: FDA-Public Use
  Company Number: US-BRISTOL-MYERS SQUIBB COMPANY-11029543

PATIENT
  Sex: Female

DRUGS (14)
  1. STADOL [Suspect]
     Indication: MIGRAINE
     Route: 045
  2. ZYPREXA [Concomitant]
  3. TRAZODONE HCL [Concomitant]
  4. KLONOPIN [Concomitant]
  5. SOMA [Concomitant]
  6. AMBIEN [Concomitant]
  7. FIORICET [Concomitant]
  8. LORTAB [Concomitant]
  9. SYNTHROID [Concomitant]
  10. PROPOXYPHENE [Concomitant]
  11. THORAZINE [Concomitant]
  12. LITHIUM CARBONATE [Concomitant]
  13. VISTARIL [Concomitant]
  14. CATAPRES [Concomitant]

REACTIONS (1)
  - DEPENDENCE [None]
